FAERS Safety Report 21124141 (Version 1)
Quarter: 2022Q3

REPORT INFORMATION
  Report Type: Spontaneous
  Country: FR (occurrence: FR)
  Receive Date: 20220725
  Receipt Date: 20220725
  Transmission Date: 20221026
  Serious: Yes (Other)
  Sender: FDA-Public Use
  Company Number: FR-DENTSPLY-2022SCDP000209

PATIENT
  Age: 40 Year
  Sex: Female
  Weight: 61 kg

DRUGS (1)
  1. EPINEPHRINE BITARTRATE\LIDOCAINE HYDROCHLORIDE [Suspect]
     Active Substance: EPINEPHRINE BITARTRATE\LIDOCAINE HYDROCHLORIDE
     Indication: Anaesthesia
     Dosage: 14 MILLILITRE TOTAL (280 MG OF LIDOCAINE AND 0.07 MG OF ADRENALINE)
     Route: 042
     Dates: start: 20220601, end: 20220601

REACTIONS (3)
  - Hypertension [Recovered/Resolved]
  - Headache [Recovered/Resolved]
  - Incorrect route of product administration [Recovered/Resolved]

NARRATIVE: CASE EVENT DATE: 20220601
